FAERS Safety Report 5668593-4 (Version None)
Quarter: 2008Q1

REPORT INFORMATION
  Report Type: 
  Country: None (occurrence: None)
  Receive Date: 20080315
  Receipt Date: 20080226
  Transmission Date: 20080703
  Serious: No
  Sender: FDA-Public Use
  Company Number: US-ABBOTT-08P-163-0440462-00

PATIENT
  Sex: Female

DRUGS (1)
  1. HUMIRA [Suspect]
     Indication: RHEUMATOID ARTHRITIS
     Dates: start: 20070101

REACTIONS (5)
  - DRUG INEFFECTIVE [None]
  - INJECTION SITE COLDNESS [None]
  - INJECTION SITE DISCOMFORT [None]
  - PAIN [None]
  - PAIN IN EXTREMITY [None]
